FAERS Safety Report 11236740 (Version 1)
Quarter: 2015Q3

REPORT INFORMATION
  Report Type: Report from Study
  Country: US (occurrence: US)
  Receive Date: 20150703
  Receipt Date: 20150703
  Transmission Date: 20151125
  Serious: Yes (Other)
  Sender: FDA-Public Use
  Company Number: PHEH2015US012535

PATIENT
  Sex: Male

DRUGS (1)
  1. TASIGNA [Suspect]
     Active Substance: NILOTINIB
     Indication: PRODUCT USED FOR UNKNOWN INDICATION
     Dosage: 300 MG, BID
     Route: 048

REACTIONS (4)
  - Pyrexia [Recovered/Resolved]
  - Pancreatitis [Not Recovered/Not Resolved]
  - Nervousness [Recovered/Resolved]
  - Somnolence [Recovered/Resolved]
